FAERS Safety Report 19612039 (Version 1)
Quarter: 2021Q3

REPORT INFORMATION
  Report Type: Spontaneous
  Country: MX (occurrence: MX)
  Receive Date: 20210726
  Receipt Date: 20210726
  Transmission Date: 20211014
  Serious: Yes (Death)
  Sender: FDA-Public Use
  Company Number: MX-LUNDBECK-DKLU3036043

PATIENT
  Age: 18 Year
  Sex: Female
  Weight: 103 kg

DRUGS (5)
  1. FRISIUM [Suspect]
     Active Substance: CLOBAZAM
     Indication: OXYGEN SATURATION ABNORMAL
  2. FRISIUM [Suspect]
     Active Substance: CLOBAZAM
     Indication: PANCREATITIS
     Route: 048
     Dates: start: 2018
  3. FRISIUM [Suspect]
     Active Substance: CLOBAZAM
     Indication: PNEUMONIA
  4. FRISIUM [Suspect]
     Active Substance: CLOBAZAM
     Indication: RENAL FAILURE
  5. FRISIUM [Suspect]
     Active Substance: CLOBAZAM
     Indication: SLEEP DISORDER

REACTIONS (3)
  - Product use in unapproved indication [Unknown]
  - Pneumonia [Fatal]
  - Pneumonia bacterial [Fatal]

NARRATIVE: CASE EVENT DATE: 2018
